FAERS Safety Report 23302086 (Version 2)
Quarter: 2024Q1

REPORT INFORMATION
  Report Type: Spontaneous
  Country: US (occurrence: US)
  Receive Date: 20231215
  Receipt Date: 20240226
  Transmission Date: 20240410
  Serious: No
  Sender: FDA-Public Use
  Company Number: US-BRISTOL-MYERS SQUIBB COMPANY-2023-181861

PATIENT
  Age: 73 Year
  Sex: Male
  Weight: 125.65 kg

DRUGS (1)
  1. POMALYST [Suspect]
     Active Substance: POMALIDOMIDE
     Indication: Plasma cell myeloma
     Route: 048

REACTIONS (6)
  - Lip swelling [Unknown]
  - Gingival swelling [Unknown]
  - Rash [Unknown]
  - Eye irritation [Unknown]
  - Pain [Unknown]
  - Discomfort [Unknown]
